FAERS Safety Report 6863115-4 (Version None)
Quarter: 2010Q3

REPORT INFORMATION
  Report Type: 
  Country: None (occurrence: None)
  Receive Date: 20100719
  Receipt Date: 20100708
  Transmission Date: 20110219
  Serious: Yes (Hospitalization)
  Sender: FDA-Public Use
  Company Number: 015270

PATIENT
  Sex: Female
  Weight: 90.4 kg

DRUGS (9)
  1. CERTOLIZUMAB PEGOL (CDP870) [Suspect]
     Indication: RHEUMATOID ARTHRITIS
     Dosage: SEE IMAGE
     Route: 058
     Dates: start: 20060111, end: 20060503
  2. CERTOLIZUMAB PEGOL (CDP870) [Suspect]
     Indication: RHEUMATOID ARTHRITIS
     Dosage: SEE IMAGE
     Route: 058
     Dates: start: 20060517, end: 20091112
  3. CERTOLIZUMAB PEGOL (CDP870) [Suspect]
     Indication: RHEUMATOID ARTHRITIS
     Dosage: SEE IMAGE
     Route: 058
     Dates: start: 20091207, end: 20100708
  4. METHOTREXATE [Concomitant]
  5. DICLOBRERL [Concomitant]
  6. AMOXICILIN SODIUM W/CLAVULANATE POTASSIUM [Concomitant]
  7. VITAMIN B6 [Concomitant]
  8. FUROSEMIDE [Concomitant]
  9. CONVALLARIA GLYCOSIDES [Concomitant]

REACTIONS (4)
  - BRONCHITIS [None]
  - DRUG INEFFECTIVE [None]
  - PLEURISY [None]
  - SYNOVITIS [None]
